FAERS Safety Report 24636496 (Version 1)
Quarter: 2024Q4

REPORT INFORMATION
  Report Type: Spontaneous
  Country: IT (occurrence: IT)
  Receive Date: 20241119
  Receipt Date: 20241119
  Transmission Date: 20250115
  Serious: Yes (Other)
  Sender: NOVARTIS
  Company Number: None

PATIENT
  Age: 8 Year
  Sex: Female
  Weight: 33 kg

DRUGS (2)
  1. TRAMETINIB [Suspect]
     Active Substance: TRAMETINIB
     Indication: Optic glioma
     Dosage: 1 MG (TRAMETINIB 0,5 MG CPR: 2 CPR AL GIORNO)
     Route: 048
     Dates: start: 20240327, end: 20241110
  2. CHOLECALCIFEROL [Concomitant]
     Active Substance: CHOLECALCIFEROL
     Indication: Vitamin D decreased
     Dosage: UNK (DIBASE GOCCE: 25 GOCCE UNA VOLTA ALLA SETTIMANA)
     Route: 048
     Dates: start: 20241017

REACTIONS (2)
  - Blood creatine phosphokinase increased [Not Recovered/Not Resolved]
  - Eczema [Not Recovered/Not Resolved]

NARRATIVE: CASE EVENT DATE: 20241111
